FAERS Safety Report 19904543 (Version 1)
Quarter: 2021Q3

REPORT INFORMATION
  Report Type: Spontaneous
  Country: CN (occurrence: CN)
  Receive Date: 20210930
  Receipt Date: 20210930
  Transmission Date: 20211014
  Serious: Yes (Hospitalization, Other)
  Sender: FDA-Public Use
  Company Number: CN-SLATE RUN PHARMACEUTICALS-21CN000698

PATIENT

DRUGS (5)
  1. PZA [Suspect]
     Active Substance: PYRAZINAMIDE
     Indication: TUBERCULOUS PLEURISY
     Dosage: 0.5 GRAM, TID
  2. AMPICILLIN [Concomitant]
     Active Substance: AMPICILLIN
     Indication: ANTIBIOTIC PROPHYLAXIS
  3. AZITHROMYCIN USP [Suspect]
     Active Substance: AZITHROMYCIN
     Indication: ANTIBIOTIC PROPHYLAXIS
     Dosage: UNK
  4. INH [Suspect]
     Active Substance: ISONIAZID
     Indication: TUBERCULOUS PLEURISY
     Dosage: 0.3 GRAM, QD
  5. RIF [RIFAMYCIN] [Suspect]
     Active Substance: RIFAMYCIN
     Indication: TUBERCULOUS PLEURISY
     Dosage: 0.45 GRAM, QD

REACTIONS (10)
  - Hepatic perfusion disorder [Recovered/Resolved]
  - Hepatotoxicity [Recovered/Resolved]
  - Uterine enlargement [Recovered/Resolved]
  - Pleural thickening [Recovered/Resolved]
  - Abortion incomplete [Recovered/Resolved]
  - Coma scale abnormal [Recovered/Resolved]
  - Acute hepatic failure [Recovered/Resolved]
  - Pleural effusion [Recovered/Resolved]
  - Bronchopulmonary aspergillosis [Recovered/Resolved]
  - Maternal exposure during pregnancy [Unknown]
